FAERS Safety Report 13768788 (Version 2)
Quarter: 2017Q3

REPORT INFORMATION
  Report Type: Spontaneous
  Country: NL (occurrence: NL)
  Receive Date: 20170719
  Receipt Date: 20170809
  Transmission Date: 20171127
  Serious: Yes (Life-Threatening, Hospitalization)
  Sender: FDA-Public Use
  Company Number: PHHY2017NL104843

PATIENT
  Age: 62 Year
  Sex: Male
  Weight: 98.5 kg

DRUGS (8)
  1. ENTRESTO [Suspect]
     Active Substance: SACUBITRIL\VALSARTAN
     Indication: CARDIAC FAILURE
     Dosage: 2 DF(200 MG), QD
     Route: 048
     Dates: end: 20170705
  2. FUROSEMIDE. [Concomitant]
     Active Substance: FUROSEMIDE
     Indication: PRODUCT USED FOR UNKNOWN INDICATION
     Dosage: 1 DF, QD
     Route: 065
  3. FENPROCOUMON [Concomitant]
     Active Substance: PHENPROCOUMON
     Indication: ATRIAL FIBRILLATION
     Dosage: UNK
     Route: 065
  4. CARVEDILOL. [Concomitant]
     Active Substance: CARVEDILOL
     Indication: PRODUCT USED FOR UNKNOWN INDICATION
     Dosage: 2 DF, QD
     Route: 065
  5. DIGITOXINE [Concomitant]
     Indication: PRODUCT USED FOR UNKNOWN INDICATION
     Dosage: 0.07 MG, UNK
     Route: 065
  6. TORASEMIDE [Concomitant]
     Active Substance: TORSEMIDE
     Indication: PRODUCT USED FOR UNKNOWN INDICATION
     Dosage: 2 DF, QD
     Route: 065
  7. ALLOPURINOL. [Concomitant]
     Active Substance: ALLOPURINOL
     Indication: GOUT
     Dosage: 1 DF, QD
     Route: 065
  8. SPIRONOLACTON [Concomitant]
     Active Substance: SPIRONOLACTONE
     Indication: CARDIAC FAILURE
     Dosage: 1 DF(50 MG ), QD
     Route: 065

REACTIONS (8)
  - Loss of consciousness [Recovering/Resolving]
  - Hyperkalaemia [Recovering/Resolving]
  - Mitral valve incompetence [Unknown]
  - Pulmonary oedema [Unknown]
  - Cardiac failure [Recovering/Resolving]
  - Malaise [Unknown]
  - Right ventricular failure [Unknown]
  - Left ventricular failure [Unknown]

NARRATIVE: CASE EVENT DATE: 20170705
